FAERS Safety Report 8230974-2 (Version None)
Quarter: 2012Q1

REPORT INFORMATION
  Report Type: 
  Country: None (occurrence: None)
  Receive Date: 20120320
  Receipt Date: 20120306
  Transmission Date: 20120608
  Serious: Yes (Hospitalization)
  Sender: FDA-Public Use
  Company Number: 2012CP000026

PATIENT
  Age: 78 Year
  Sex: Female

DRUGS (2)
  1. OFIRMEV [Suspect]
     Indication: PAIN
     Dosage: IV
     Route: 042
     Dates: start: 20120305, end: 20120305
  2. DILAUDID [Concomitant]

REACTIONS (3)
  - WHEEZING [None]
  - MUSCLE RIGIDITY [None]
  - RESPIRATORY DISTRESS [None]
